FAERS Safety Report 5101759-0 (Version None)
Quarter: 2006Q3

REPORT INFORMATION
  Report Type: 
  Country: None (occurrence: None)
  Receive Date: 20060731
  Receipt Date: 20060604
  Transmission Date: 20061208
  Serious: No
  Sender: FDA-Public Use
  Company Number: 2006PV014968

PATIENT
  Sex: Female
  Weight: 117.9352 kg

DRUGS (5)
  1. BYETTA [Suspect]
     Indication: DIABETES MELLITUS NON-INSULIN-DEPENDENT
     Dosage: SEE IMAGE
     Route: 058
     Dates: start: 20060523, end: 20060601
  2. BYETTA [Suspect]
     Indication: DIABETES MELLITUS NON-INSULIN-DEPENDENT
     Dosage: SEE IMAGE
     Route: 058
     Dates: start: 20060601, end: 20060601
  3. AMARYL [Concomitant]
  4. GLUCOPHAGE [Concomitant]
  5. NEXIUM [Concomitant]

REACTIONS (9)
  - BLOOD GLUCOSE DECREASED [None]
  - DECREASED APPETITE [None]
  - DIARRHOEA [None]
  - FEELING ABNORMAL [None]
  - INFLUENZA LIKE ILLNESS [None]
  - NAUSEA [None]
  - RETCHING [None]
  - STOMACH DISCOMFORT [None]
  - WEIGHT DECREASED [None]
